FAERS Safety Report 9913726 (Version 1)
Quarter: 2014Q1

REPORT INFORMATION
  Report Type: Spontaneous
  Country: US (occurrence: None)
  Receive Date: 20140218
  Receipt Date: 20140218
  Transmission Date: 20141002
  Serious: Yes (Other)
  Sender: FDA-Public Use
  Company Number: None

PATIENT
  Age: 14 Year
  Sex: 0
  Weight: 52.3 kg

DRUGS (2)
  1. MINOCYCLINE [Suspect]
     Indication: ACNE
     Route: 048
     Dates: end: 201011
  2. DOXYCYCLINE [Suspect]
     Indication: ACNE
     Route: 048
     Dates: end: 201011

REACTIONS (1)
  - Treatment failure [None]
